FAERS Safety Report 6509221-5 (Version None)
Quarter: 2009Q4

REPORT INFORMATION
  Report Type: 
  Country: None (occurrence: None)
  Receive Date: 20091221
  Receipt Date: 20091207
  Transmission Date: 20100525
  Serious: Yes (Hospitalization)
  Sender: FDA-Public Use
  Company Number: GB-MYLANLABS-2009S1021085

PATIENT
  Age: 1 Year
  Sex: Male

DRUGS (3)
  1. DICLOFENAC SODIUM [Suspect]
     Indication: DRUG USE FOR UNKNOWN INDICATION
  2. FENTANYL [Suspect]
     Indication: DRUG USE FOR UNKNOWN INDICATION
  3. PROPOFOL [Suspect]
     Indication: PAIN

REACTIONS (1)
  - ANAPHYLACTIC REACTION [None]
